FAERS Safety Report 17483674 (Version 1)
Quarter: 2020Q1

REPORT INFORMATION
  Report Type: Spontaneous
  Country: US (occurrence: US)
  Receive Date: 20200301
  Receipt Date: 20200301
  Transmission Date: 20200409
  Serious: Yes (Death)
  Sender: FDA-Public Use
  Company Number: None

PATIENT
  Age: 63 Year
  Sex: Male
  Weight: 135 kg

DRUGS (1)
  1. AZITHROMYCIN ANHYDROUS. [Suspect]
     Active Substance: AZITHROMYCIN ANHYDROUS
     Indication: LYME DISEASE
     Dosage: ?          QUANTITY:10 TABLET(S);?
     Route: 048
     Dates: start: 20190616, end: 20190618

REACTIONS (12)
  - Consciousness fluctuating [None]
  - Acute kidney injury [None]
  - Chest discomfort [None]
  - Hypopnoea [None]
  - Cardiac arrest [None]
  - Dialysis [None]
  - Myocardial infarction [None]
  - Pyrexia [None]
  - Fungal infection [None]
  - Respiratory failure [None]
  - Panic reaction [None]
  - Septic shock [None]

NARRATIVE: CASE EVENT DATE: 20190618
